FAERS Safety Report 11588542 (Version 1)
Quarter: 2015Q4

REPORT INFORMATION
  Report Type: Spontaneous
  Country: US (occurrence: None)
  Receive Date: 20151001
  Receipt Date: 20151001
  Transmission Date: 20160304
  Serious: Yes (Hospitalization)
  Sender: FDA-Public Use
  Company Number: None

PATIENT
  Age: 77 Year
  Sex: Female
  Weight: 64.9 kg

DRUGS (3)
  1. BENDAMUSTINE HYDROCHLORIDE [Suspect]
     Active Substance: BENDAMUSTINE HYDROCHLORIDE
     Dates: end: 20150908
  2. VELCADE [Suspect]
     Active Substance: BORTEZOMIB
     Dates: end: 20150915
  3. RITUXIMAB (MOAB C2B8 ANTI CD20, CHIMERIC) [Suspect]
     Active Substance: RITUXIMAB
     Dates: end: 20150908

REACTIONS (11)
  - Urinary incontinence [None]
  - Neutropenia [None]
  - Hemiparesis [None]
  - Decreased appetite [None]
  - Chills [None]
  - Micturition urgency [None]
  - Nausea [None]
  - Hypovolaemia [None]
  - Pyrexia [None]
  - Thrombocytopenia [None]
  - Asthenia [None]

NARRATIVE: CASE EVENT DATE: 20150929
